FAERS Safety Report 13386379 (Version 2)
Quarter: 2017Q4

REPORT INFORMATION
  Report Type: Spontaneous
  Country: US (occurrence: US)
  Receive Date: 20170330
  Receipt Date: 20171221
  Transmission Date: 20180320
  Serious: No
  Sender: FDA-Public Use
  Company Number: US-MYLANLABS-2017M1003608

PATIENT
  Age: 80 Year
  Sex: Male
  Weight: 58.5 kg

DRUGS (1)
  1. AMLODIPINE BESYLATE TABLETS, USP [Suspect]
     Active Substance: AMLODIPINE BESYLATE
     Indication: HYPERTENSION
     Dosage: 10 MG, AM
     Route: 048
     Dates: start: 201701, end: 20170116

REACTIONS (3)
  - Foreign body in respiratory tract [Recovered/Resolved]
  - Throat irritation [Recovered/Resolved]
  - Aphonia [Recovered/Resolved]

NARRATIVE: CASE EVENT DATE: 201701
